FAERS Safety Report 4392058-3 (Version None)
Quarter: 2004Q3

REPORT INFORMATION
  Report Type: 
  Country: None (occurrence: None)
  Receive Date: 20040708
  Receipt Date: 20040624
  Transmission Date: 20050211
  Serious: Yes (Other)
  Sender: FDA-Public Use
  Company Number: PHBS2004US08471

PATIENT
  Sex: Female

DRUGS (2)
  1. CYCLOSPORINE [Suspect]
     Indication: RENAL TRANSPLANT
     Dosage: 25 MG/KG/D
  2. TACROLIMUS [Suspect]

REACTIONS (3)
  - GINGIVAL HYPERPLASIA [None]
  - HIRSUTISM [None]
  - OBSTRUCTIVE UROPATHY [None]
